FAERS Safety Report 16384537 (Version 1)
Quarter: 2019Q2

REPORT INFORMATION
  Report Type: Spontaneous
  Country: FR (occurrence: FR)
  Receive Date: 20190603
  Receipt Date: 20190603
  Transmission Date: 20190711
  Serious: Yes (Other)
  Sender: FDA-Public Use
  Company Number: FR-MYLANLABS-2019M1051235

PATIENT
  Age: 81 Year
  Sex: Female
  Weight: 45 kg

DRUGS (3)
  1. SINEMET [Suspect]
     Active Substance: CARBIDOPA\LEVODOPA
     Dosage: 1 UNK, QD
     Route: 048
     Dates: start: 20180618, end: 20181002
  2. MIRTAZAPINE. [Suspect]
     Active Substance: MIRTAZAPINE
     Indication: SOMNOLENCE
     Dosage: 15 MILLIGRAM, QD(15 MILLIGRAM, QPM (EVENING))
     Route: 065
     Dates: start: 20180330
  3. SINEMET [Suspect]
     Active Substance: CARBIDOPA\LEVODOPA
     Indication: DEMENTIA WITH LEWY BODIES
     Dosage: 3 DOSAGE FORM, QD(1 DOSAGE FORM, TID)
     Route: 048
     Dates: start: 20180518, end: 2018

REACTIONS (4)
  - Drug ineffective [Not Recovered/Not Resolved]
  - Dementia with Lewy bodies [Unknown]
  - Gastric disorder [Unknown]
  - Condition aggravated [Unknown]

NARRATIVE: CASE EVENT DATE: 2018
